FAERS Safety Report 13152014 (Version 2)
Quarter: 2017Q3

REPORT INFORMATION
  Report Type: Spontaneous
  Country: FR (occurrence: FR)
  Receive Date: 20170125
  Receipt Date: 20170705
  Transmission Date: 20171127
  Serious: Yes (Hospitalization)
  Sender: FDA-Public Use
  Company Number: FR-PFIZER INC-2017027613

PATIENT
  Age: 85 Year
  Sex: Female

DRUGS (5)
  1. ENALAPRIL MALEATE. [Concomitant]
     Active Substance: ENALAPRIL MALEATE
     Dosage: 20 MG, 1X/DAY
     Route: 048
  2. PARACETAMOL [Concomitant]
     Active Substance: ACETAMINOPHEN
     Dosage: 1 G THRICE DAILY AS NEEDED
     Route: 048
  3. SERESTA [Concomitant]
     Active Substance: OXAZEPAM
     Dosage: 10 MG, AS NEEDED
     Route: 048
  4. AMLOR [Suspect]
     Active Substance: AMLODIPINE BESYLATE
     Indication: HYPERTENSION
     Dosage: 10 MG, 1X/DAY
     Route: 048
     Dates: start: 20161206
  5. CALCIPARINE [Suspect]
     Active Substance: HEPARIN CALCIUM
     Indication: FALL
     Dosage: UNK
     Route: 058
     Dates: start: 20161206, end: 20161210

REACTIONS (4)
  - Injection site vesicles [Recovered/Resolved]
  - Toxic skin eruption [Recovered/Resolved]
  - Dermatitis allergic [Recovered/Resolved]
  - Rash maculo-papular [Recovered/Resolved]

NARRATIVE: CASE EVENT DATE: 20161211
